FAERS Safety Report 10403134 (Version 4)
Quarter: 2015Q1

REPORT INFORMATION
  Report Type: Spontaneous
  Country: US (occurrence: US)
  Receive Date: 20140822
  Receipt Date: 20150123
  Transmission Date: 20150720
  Serious: Yes (Hospitalization, Other)
  Sender: FDA-Public Use
  Company Number: US-GLAXOSMITHKLINE-A1072144A

PATIENT
  Age: 74 Year
  Sex: Female

DRUGS (23)
  1. VENTOLIN HFA [Suspect]
     Active Substance: ALBUTEROL SULFATE
     Indication: HYPERSENSITIVITY
  2. ATROVENT [Suspect]
     Active Substance: IPRATROPIUM BROMIDE
     Indication: PRODUCT USED FOR UNKNOWN INDICATION
     Dosage: UNKNOWN
  3. VITAMIN D [Concomitant]
     Active Substance: CHOLECALCIFEROL
  4. TYLENOL [Concomitant]
     Active Substance: ACETAMINOPHEN
  5. NASALCROM [Concomitant]
     Active Substance: CROMOLYN SODIUM
  6. UNSPECIFIED MEDICATION [Concomitant]
     Active Substance: UNSPECIFIED INGREDIENT
  7. TUMS [Concomitant]
     Active Substance: CALCIUM CARBONATE
  8. LIBRAX [Concomitant]
     Active Substance: CHLORDIAZEPOXIDE HYDROCHLORIDE\CLIDINIUM BROMIDE
  9. PROBIOTICS [Concomitant]
     Active Substance: PROBIOTICS NOS
  10. PROTONIX [Concomitant]
     Active Substance: PANTOPRAZOLE SODIUM
  11. ATORVASTATIN [Concomitant]
     Active Substance: ATORVASTATIN
  12. BIOTIN [Concomitant]
     Active Substance: BIOTIN
  13. VENTOLIN HFA [Suspect]
     Active Substance: ALBUTEROL SULFATE
     Indication: BRONCHOSPASM
     Dosage: 90 MCG
     Route: 055
     Dates: start: 2004
  14. METFORMIN [Suspect]
     Active Substance: METFORMIN HYDROCHLORIDE
     Indication: PRODUCT USED FOR UNKNOWN INDICATION
     Dosage: UNK, U
     Route: 065
  15. QVAR [Concomitant]
     Active Substance: BECLOMETHASONE DIPROPIONATE
  16. SINGULAIR [Concomitant]
     Active Substance: MONTELUKAST SODIUM
  17. ADALAT [Concomitant]
     Active Substance: NIFEDIPINE
  18. ZYRTEC [Concomitant]
     Active Substance: CETIRIZINE HYDROCHLORIDE
  19. SALINE NOSE DROPS [Concomitant]
  20. FLOVENT DISKUS [Suspect]
     Active Substance: FLUTICASONE PROPIONATE
     Indication: PRODUCT USED FOR UNKNOWN INDICATION
     Dosage: UNK, U
     Route: 065
  21. FISH OIL [Concomitant]
     Active Substance: FISH OIL
  22. NASONEX [Concomitant]
     Active Substance: MOMETASONE FUROATE
  23. POTASSIUM [Concomitant]
     Active Substance: POTASSIUM

REACTIONS (12)
  - Dyspnoea [Unknown]
  - Bronchitis [Unknown]
  - Nasal oedema [Unknown]
  - Bronchospasm [Unknown]
  - Fall [Unknown]
  - Concussion [Unknown]
  - Multiple allergies [Unknown]
  - Loss of consciousness [Unknown]
  - Head injury [Unknown]
  - Weight decreased [Recovered/Resolved]
  - Hospitalisation [Unknown]
  - Memory impairment [Unknown]

NARRATIVE: CASE EVENT DATE: 201312
